FAERS Safety Report 6410533-4 (Version None)
Quarter: 2009Q4

REPORT INFORMATION
  Report Type: 
  Country: None (occurrence: None)
  Receive Date: 20091022
  Receipt Date: 20091020
  Transmission Date: 20100525
  Serious: Yes (Hospitalization)
  Sender: FDA-Public Use
  Company Number: TW-BRISTOL-MYERS SQUIBB COMPANY-14812101

PATIENT
  Age: 52 Year
  Sex: Male
  Weight: 64 kg

DRUGS (5)
  1. CETUXIMAB [Suspect]
     Indication: OESOPHAGEAL SQUAMOUS CELL CARCINOMA
     Dosage: CETUXIMAB 2MG/ML 0N 09SEP09:400MG/M2 16SEP09-07OCT09:250 MG/M2(21D)
     Route: 042
     Dates: start: 20090909, end: 20091007
  2. PACLITAXEL [Suspect]
     Indication: OESOPHAGEAL SQUAMOUS CELL CARCINOMA
     Route: 042
     Dates: start: 20090914, end: 20091008
  3. CISPLATIN [Suspect]
     Indication: OESOPHAGEAL SQUAMOUS CELL CARCINOMA
     Route: 042
     Dates: start: 20090915, end: 20091009
  4. RADIOTHERAPY [Suspect]
     Indication: OESOPHAGEAL SQUAMOUS CELL CARCINOMA
  5. GASCON [Concomitant]
     Indication: ABDOMINAL DISTENSION
     Dosage: TABS
     Route: 048
     Dates: start: 20090929

REACTIONS (1)
  - OESOPHAGITIS [None]
